FAERS Safety Report 10170870 (Version 4)
Quarter: 2014Q2

REPORT INFORMATION
  Report Type: Report from Study
  Country: AU (occurrence: AU)
  Receive Date: 20140514
  Receipt Date: 20140609
  Transmission Date: 20141212
  Serious: Yes (Death, Hospitalization)
  Sender: FDA-Public Use
  Company Number: AU-ROCHE-1381555

PATIENT
  Age: 73 Year
  Sex: Male
  Weight: 70 kg

DRUGS (13)
  1. OBINUTUZUMAB [Suspect]
     Indication: CHRONIC LYMPHOCYTIC LEUKAEMIA
     Dosage: CEASED, TAKEN ON DAYS 1, 5 AND 18 OF EACH MONTH
     Route: 042
     Dates: start: 20140311, end: 20140416
  2. RITUXIMAB [Suspect]
     Indication: CHRONIC LYMPHOCYTIC LEUKAEMIA
     Dosage: IN JAN/2014, HE RECEIVED THE LAST DOSE OF RITUXIMAB.
     Route: 065
     Dates: start: 2012
  3. CLADRIBINE [Suspect]
     Indication: CHRONIC LYMPHOCYTIC LEUKAEMIA
     Route: 042
     Dates: start: 200204, end: 20140320
  4. FLUDARABINE [Suspect]
     Indication: CHRONIC LYMPHOCYTIC LEUKAEMIA
     Dosage: 25MG/M2 EVERY 3 DAYS X6
     Route: 042
     Dates: start: 200903
  5. CYCLOPHOSPHAMIDE [Suspect]
     Indication: CHRONIC LYMPHOCYTIC LEUKAEMIA
     Dosage: 4 CYCLES
     Route: 065
     Dates: start: 2002
  6. CYCLOPHOSPHAMIDE [Suspect]
     Dosage: 6 CYCLES
     Route: 065
     Dates: start: 2009
  7. PANTOPRAZOLE [Concomitant]
     Indication: GASTROOESOPHAGEAL REFLUX DISEASE
     Route: 048
     Dates: start: 20140327
  8. DEFERASIROX [Concomitant]
     Indication: IRON OVERLOAD
     Route: 048
     Dates: start: 20140407
  9. ALLOPURINOL [Concomitant]
     Indication: TUMOUR LYSIS SYNDROME
     Route: 048
     Dates: start: 20140325
  10. THYROXINE [Concomitant]
     Indication: HYPOTHYROIDISM
     Dosage: LONG TERM ONGOING
     Route: 048
  11. VALACICLOVIR [Concomitant]
     Indication: PROPHYLAXIS
     Route: 048
     Dates: start: 20140325
  12. BACTRIM [Concomitant]
     Indication: PROPHYLAXIS
     Dosage: 160/800 MG ?MON/WED/FRI
     Route: 048
     Dates: start: 20140325
  13. TRANEXAMIC ACID [Concomitant]
     Indication: HAEMORRHAGE
     Route: 048
     Dates: start: 20140326

REACTIONS (4)
  - Hypotension [Recovered/Resolved]
  - Pyrexia [Recovered/Resolved]
  - Pulmonary mycosis [Recovering/Resolving]
  - Acute myeloid leukaemia [Fatal]
